FAERS Safety Report 10029832 (Version 1)
Quarter: 2014Q1

REPORT INFORMATION
  Report Type: Spontaneous
  Country: US (occurrence: None)
  Receive Date: 20140320
  Receipt Date: 20140320
  Transmission Date: 20141002
  Serious: Yes (Hospitalization)
  Sender: FDA-Public Use
  Company Number: 2014-US-002625

PATIENT
  Age: 31 Year
  Sex: Male

DRUGS (1)
  1. FAZACLO [Suspect]
     Dosage: DOSE VARIANCE 25-250 MG DAILY, ORAL
     Route: 048
     Dates: start: 20101026, end: 201402

REACTIONS (1)
  - Hospitalisation [None]
